FAERS Safety Report 8457012 (Version 6)
Quarter: 2013Q2

REPORT INFORMATION
  Report Type: Spontaneous
  Country: US (occurrence: US)
  Receive Date: 20120313
  Receipt Date: 20120703
  Transmission Date: 20140414
  Serious: Yes (Other)
  Sender: FDA-Public Use
  Company Number: PHEH2012US003815

PATIENT
  Age: 67 Year
  Sex: Female

DRUGS (12)
  1. GILENYA [Suspect]
     Indication: RELAPSING-REMITTING MULTIPLE SCLEROSIS
     Route: 048
     Dates: start: 20120124, end: 20120220
  2. MIRAPEX [Concomitant]
     Dosage: 1 DF, QHS
     Route: 048
  3. FAMPRIDINE [Concomitant]
     Dosage: 10 MG, TID
  4. CYMBALTA [Concomitant]
     Dosage: 1 DF, BID
     Route: 048
  5. NEURONTIN [Concomitant]
     Dosage: 1 DF, TID
     Route: 048
  6. BACLOFEN [Concomitant]
     Dosage: 1 DF, TID
     Route: 048
  7. VALIUM [Concomitant]
     Indication: MUSCLE SPASMS
     Dosage: 1 DF, QHS
     Route: 048
  8. LASIX [Concomitant]
  9. PROVENTIL HFA [Concomitant]
  10. CALCIUM CARBONATE W/VITAMIN D NOS [Concomitant]
  11. VICODIN [Concomitant]
  12. COPAXONE [Concomitant]
     Dosage: 1 DF, DAILY

REACTIONS (9)
  - DYSPNOEA [Recovered/Resolved]
  - FATIGUE [Not Recovered/Not Resolved]
  - NAUSEA [Unknown]
  - TENDONITIS [Unknown]
  - HYPERKERATOSIS [Unknown]
  - PAIN IN EXTREMITY [Unknown]
  - FASCIITIS [Unknown]
  - HEART RATE INCREASED [Unknown]
  - COUGH [Not Recovered/Not Resolved]
